FAERS Safety Report 5679730-X (Version None)
Quarter: 2008Q1

REPORT INFORMATION
  Report Type: 
  Country: None (occurrence: None)
  Receive Date: 20080324
  Receipt Date: 20080313
  Transmission Date: 20080703
  Serious: Yes (Other)
  Sender: FDA-Public Use
  Company Number: CHPA2008US04630

PATIENT
  Age: 74 Year
  Sex: Male

DRUGS (1)
  1. BENEFIBER W/ WHEAT DEXTRIN (NCH)(WHEAT DEXTRIN) POWDER [Suspect]
     Indication: CONSTIPATION
     Dosage: 2 TSP, TID, ORAL
     Route: 048
     Dates: start: 20070301

REACTIONS (3)
  - COLONIC POLYP [None]
  - CONSTIPATION [None]
  - DRUG INEFFECTIVE [None]
